FAERS Safety Report 26106923 (Version 1)
Quarter: 2025Q4

REPORT INFORMATION
  Report Type: Spontaneous
  Country: EU (occurrence: EU)
  Receive Date: 20251201
  Receipt Date: 20251201
  Transmission Date: 20260117
  Serious: Yes (Hospitalization, Other)
  Sender: CHEPLAPHARM
  Company Number: None

PATIENT
  Age: 62 Year
  Sex: Female
  Weight: 75 kg

DRUGS (30)
  1. QUETIAPINE [Suspect]
     Active Substance: QUETIAPINE
     Indication: Insomnia
     Dosage: DAILY DOSE: 25 MILLIGRAM
     Route: 048
     Dates: start: 20250130, end: 20250225
  2. QUETIAPINE [Suspect]
     Active Substance: QUETIAPINE
     Indication: Insomnia
     Dosage: QUETIAPIN 100 MG 0-0-1?DAILY DOSE: 100 MILLIGRAM
     Route: 048
     Dates: start: 20250226, end: 20250623
  3. QUETIAPINE [Suspect]
     Active Substance: QUETIAPINE
     Indication: Insomnia
     Dosage: QUETIAPIN 50 MG 0-0-1; REDUCED?DAILY DOSE: 50 MILLIGRAM
     Route: 048
  4. PREGABALIN [Suspect]
     Active Substance: PREGABALIN
     Indication: Major depression
     Dosage: PREGABALIN 75 MG 0-1-2?DAILY DOSE: 225 MILLIGRAM
     Route: 048
     Dates: start: 20201005, end: 20250623
  5. PREGABALIN [Suspect]
     Active Substance: PREGABALIN
     Indication: Major depression
     Dosage: REDUCTION TO  0-1-1?DAILY DOSE: 150 MILLIGRAM
     Route: 048
  6. VENLAFAXINE [Suspect]
     Active Substance: VENLAFAXINE HYDROCHLORIDE
     Indication: Major depression
     Dosage: VENLAFAXIN 225 MG 1-0-0 FROM 14/07/2025 PROGRESSIVE REDUCTION OF DOSE?DAILY DOSE: 225 MILLIGRAM
     Route: 048
     Dates: start: 20181214, end: 20250714
  7. VENLAFAXINE [Suspect]
     Active Substance: VENLAFAXINE HYDROCHLORIDE
     Indication: Major depression
     Dosage: VENLAFAXINE 75 MG 2-0-0 FOR 1 WEEK?DAILY DOSE: 2 DOSAGE FORM
     Route: 048
  8. VENLAFAXINE [Suspect]
     Active Substance: VENLAFAXINE HYDROCHLORIDE
     Indication: Major depression
     Dosage: VENLAFAXINE 75 MG 1-0-0 FOR 2 WEEKS?DAILY DOSE: 1 DOSAGE FORM
     Route: 048
  9. VENLAFAXINE [Suspect]
     Active Substance: VENLAFAXINE HYDROCHLORIDE
     Indication: Major depression
     Dosage: VENLAFAXINE 37.5 MG 1-0-0 FOR 3 WEEKS?DAILY DOSE: 1 DOSAGE FORM
     Route: 048
  10. TRAZODONE [Suspect]
     Active Substance: TRAZODONE HYDROCHLORIDE
     Indication: Insomnia
     Dosage: TRAZODONA 100 MG 0-0-0-1?DAILY DOSE: 100 MILLIGRAM
     Route: 048
     Dates: start: 20150609
  11. PANTOPRAZOLE SODIUM [Concomitant]
     Active Substance: PANTOPRAZOLE SODIUM
     Dosage: 1-0-0?DAILY DOSE: 40 MILLIGRAM
  12. ENALAPRIL [Concomitant]
     Active Substance: ENALAPRIL
     Dosage: 1-0-0?DAILY DOSE: 10 MILLIGRAM
  13. ATORVASTATIN [Concomitant]
     Active Substance: ATORVASTATIN
     Dosage: 0-0-1?DAILY DOSE: 80 MILLIGRAM
  14. FENOFIBRATE [Concomitant]
     Active Substance: FENOFIBRATE
     Dosage: 0-0-1?DAILY DOSE: 160 MILLIGRAM
  15. CLOPIDOGREL [Concomitant]
     Active Substance: CLOPIDOGREL BISULFATE
     Dosage: 0-1-0?DAILY DOSE: 75 MILLIGRAM
  16. SYNJARDY [Concomitant]
     Active Substance: EMPAGLIFLOZIN\METFORMIN HYDROCHLORIDE
     Dosage: 1-0-1?DAILY DOSE: 2 DOSAGE FORM
  17. SITAGLIPTIN PHOSPHATE [Concomitant]
     Active Substance: SITAGLIPTIN PHOSPHATE
     Dosage: 0-1-01?DAILY DOSE: 2 DOSAGE FORM
  18. TOUJEO [Concomitant]
     Active Substance: INSULIN GLARGINE
     Dosage: 36-0-0 UNITS/ML/IN MUP 25, RECENT DOSE INCREASE ACCORDING TO ENDOCRINOLOGY NURSING GUIDELINES
  19. NOVORAPID [Concomitant]
     Active Substance: INSULIN ASPART
     Dosage: 5-5-5 1
  20. CLORAZEPATE DIPOTASSIUM [Concomitant]
     Active Substance: CLORAZEPATE DIPOTASSIUM
     Dosage: 0-0-1?DAILY DOSE: 5 MILLIGRAM
  21. LEVOTHYROXINE SODIUM [Concomitant]
     Active Substance: LEVOTHYROXINE SODIUM
     Dosage: 1-0-0?DAILY DOSE: 137 MICROGRAM
  22. EBASTINE [Concomitant]
     Active Substance: EBASTINE
     Indication: Hypersensitivity
     Dosage: IF ALLERGIC
  23. BUDESONIDE\FORMOTEROL [Concomitant]
     Active Substance: BUDESONIDE\FORMOTEROL
     Dosage: 1-0-1/POWDER FOR INHALATION
  24. TERBUTALINE SULFATE [Concomitant]
     Active Substance: TERBUTALINE SULFATE
     Indication: Dyspnoea
     Dosage: IF SHORTNESS OF BREATH
  25. ACETAMINOPHEN [Concomitant]
     Active Substance: ACETAMINOPHEN
     Dosage: RARELY USED
  26. DEXKETOPROFEN [Concomitant]
     Active Substance: DEXKETOPROFEN
     Dosage: 1 OR 2 PER DAY
  27. Micralax enemas [Concomitant]
     Dosage: 1-0-1/SINCE LAST ADMISSION, NOT EFFECTIVE
  28. DUPHALAC [Concomitant]
     Active Substance: LACTULOSE
     Dosage: 1-1-1
  29. LINACLOTIDE [Concomitant]
     Active Substance: LINACLOTIDE
  30. MEBEVERINE [Concomitant]
     Active Substance: MEBEVERINE

REACTIONS (9)
  - Constipation [Recovering/Resolving]
  - Suicide attempt [Unknown]
  - Intentional overdose [Unknown]
  - Iron deficiency [Unknown]
  - Haemorrhoids [Unknown]
  - Nausea [Unknown]
  - Vomiting [Unknown]
  - Abdominal pain upper [Unknown]
  - Off label use [Recovered/Resolved]

NARRATIVE: CASE EVENT DATE: 20250101
